FAERS Safety Report 14348772 (Version 5)
Quarter: 2020Q2

REPORT INFORMATION
  Report Type: Report from Study
  Country: BR (occurrence: BR)
  Receive Date: 20180104
  Receipt Date: 20200523
  Transmission Date: 20200713
  Serious: Yes (Other)
  Sender: FDA-Public Use
  Company Number: BR-ROCHE-2046306

PATIENT
  Sex: Female
  Weight: 68 kg

DRUGS (6)
  1. ARAVA [Concomitant]
     Active Substance: LEFLUNOMIDE
  2. MABTHERA [Suspect]
     Active Substance: RITUXIMAB
     Route: 042
     Dates: start: 20171207
  3. PARACETAMOL [Concomitant]
     Active Substance: ACETAMINOPHEN
     Route: 065
  4. MABTHERA [Suspect]
     Active Substance: RITUXIMAB
     Indication: RHEUMATOID ARTHRITIS
     Route: 042
     Dates: start: 20171222
  5. SALINE [SODIUM CHLORIDE] [Concomitant]
     Active Substance: SODIUM CHLORIDE
     Route: 065
  6. DEXCHLORPHENIRAMINE [Concomitant]
     Active Substance: DEXCHLORPHENIRAMINE
     Route: 048

REACTIONS (15)
  - Cough [Recovered/Resolved]
  - Dysphagia [Recovered/Resolved]
  - Malaise [Recovered/Resolved]
  - Pruritus [Recovered/Resolved]
  - Tachycardia [Recovered/Resolved]
  - Dyspnoea [Recovered/Resolved]
  - Anaphylactic shock [Recovered/Resolved]
  - Speech disorder [Recovered/Resolved]
  - Blood pressure increased [Recovered/Resolved]
  - Tongue disorder [Recovered/Resolved]
  - Hypertension [Recovered/Resolved]
  - Laryngeal oedema [Recovered/Resolved]
  - Head discomfort [Recovered/Resolved]
  - Anxiety [Recovered/Resolved]
  - Hypertension [Unknown]
